FAERS Safety Report 20030824 (Version 2)
Quarter: 2021Q4

REPORT INFORMATION
  Report Type: Report from Study
  Country: KR (occurrence: None)
  Receive Date: 20211103
  Receipt Date: 20211111
  Transmission Date: 20220303
  Serious: Yes (Hospitalization)
  Sender: FDA-Public Use
  Company Number: KR-ROCHE-2946434

PATIENT
  Age: 46 Year
  Sex: Male
  Weight: 58.1 kg

DRUGS (19)
  1. ATEZOLIZUMAB [Suspect]
     Active Substance: ATEZOLIZUMAB
     Indication: Renal cell carcinoma
     Dosage: ON 10/MAY/2021, HE RECEIVED THE MOST RECENT DOSE OF ATEZOLIZUMAB (1200 MG) PRIOR TO AE AND SAE.
     Route: 042
     Dates: start: 20210215
  2. CABOZANTINIB [Suspect]
     Active Substance: CABOZANTINIB
     Indication: Renal cell carcinoma
     Route: 048
     Dates: start: 20210215
  3. LEVOTHYROXINE SODIUM [Concomitant]
     Active Substance: LEVOTHYROXINE SODIUM
     Indication: Hypothyroidism
     Dosage: YES
     Route: 048
     Dates: start: 20200818
  4. NORVASC [Concomitant]
     Active Substance: AMLODIPINE BESYLATE
     Indication: Hypertension
     Dosage: GIVEN FOR PROPHYLAXIS IS YES ;ONGOING: YES
     Route: 048
     Dates: start: 20191226
  5. NORVASC [Concomitant]
     Active Substance: AMLODIPINE BESYLATE
     Route: 048
     Dates: start: 20210215
  6. EDOXABAN TOSYLATE [Concomitant]
     Active Substance: EDOXABAN TOSYLATE
     Indication: Pulmonary embolism
     Dosage: YES
     Route: 048
     Dates: start: 20191121
  7. EDOXABAN TOSYLATE [Concomitant]
     Active Substance: EDOXABAN TOSYLATE
     Route: 048
     Dates: start: 20210429
  8. EZETIMIBE\ROSUVASTATIN [Concomitant]
     Active Substance: EZETIMIBE\ROSUVASTATIN
     Indication: Hypercholesterolaemia
     Dosage: GIVEN FOR PROPHYLAXIS IS YES ;ONGOING: YES
     Route: 048
     Dates: start: 20191226
  9. MAGNESIUM HYDROXIDE [Concomitant]
     Active Substance: MAGNESIUM HYDROXIDE
     Indication: Constipation
     Dosage: GIVEN FOR PROPHYLAXIS IS YES ;ONGOING: YES
     Route: 048
     Dates: start: 20210215
  10. CINALONG [Concomitant]
     Indication: Hypertension
     Dosage: YES
     Route: 048
     Dates: start: 20210510
  11. PREDNISOLONE [Concomitant]
     Active Substance: PREDNISOLONE
     Dosage: YES
     Route: 048
     Dates: start: 20210707
  12. GASTER (SOUTH KOREA) [Concomitant]
     Indication: Gastritis
     Dosage: GIVEN FOR PROPHYLAXIS IS YES ;ONGOING: YES
     Route: 048
     Dates: start: 20210828
  13. LEVOKACIN [Concomitant]
     Indication: Pneumonia
     Dosage: YES
     Route: 048
     Dates: start: 20210828
  14. SULFAMETHOXAZOLE\TRIMETHOPRIM [Concomitant]
     Active Substance: SULFAMETHOXAZOLE\TRIMETHOPRIM
     Indication: Pneumonia
     Dosage: DRUG DOSE FIRST ADMINISTERED IS 1 TABLET ;ONGOING: YES
     Route: 048
     Dates: start: 20210828
  15. LOPAINE [Concomitant]
     Indication: Diarrhoea
     Dosage: YES
     Route: 048
     Dates: start: 20210914
  16. ZOLPIDEM TARTRATE [Concomitant]
     Active Substance: ZOLPIDEM TARTRATE
     Indication: Insomnia
     Dosage: YES
     Route: 048
     Dates: start: 20210914
  17. DIHYDROCODEINE [Concomitant]
     Active Substance: DIHYDROCODEINE
     Indication: Flank pain
     Dosage: SR TABLET
     Route: 048
     Dates: start: 20211026
  18. SODIUM CHLORIDE [Concomitant]
     Active Substance: SODIUM CHLORIDE
     Route: 042
     Dates: start: 20211026
  19. NEXIUM [Concomitant]
     Active Substance: ESOMEPRAZOLE MAGNESIUM
     Indication: Gastritis
     Dosage: 1 OTHER
     Route: 042
     Dates: start: 20211026

REACTIONS (1)
  - Haemoptysis [Not Recovered/Not Resolved]

NARRATIVE: CASE EVENT DATE: 20211025
